FAERS Safety Report 19982139 (Version 4)
Quarter: 2022Q3

REPORT INFORMATION
  Report Type: Other
  Country: US (occurrence: None)
  Receive Date: 20211022
  Receipt Date: 20220728
  Transmission Date: 20221027
  Serious: Yes (Hospitalization, Other)
  Sender: FDA-Public Use
  Company Number: US-ROCHE-2937806

PATIENT
  Sex: Female
  Weight: 98.064 kg

DRUGS (13)
  1. ACTEMRA [Suspect]
     Active Substance: TOCILIZUMAB
     Indication: Giant cell arteritis
     Route: 058
     Dates: start: 20210501
  2. LUCENTIS [Suspect]
     Active Substance: RANIBIZUMAB
     Indication: Retinal vein occlusion
     Route: 065
     Dates: start: 202102
  3. ACTEMRA [Suspect]
     Active Substance: TOCILIZUMAB
     Indication: Autoimmune disorder
     Dosage: INJECT 162MG (1 PEN) SUBCUTANEOUSLY EVERY 10 DAY(S) AS DIRECTED
     Route: 058
  4. ACTEMRA [Suspect]
     Active Substance: TOCILIZUMAB
  5. ACTEMRA [Suspect]
     Active Substance: TOCILIZUMAB
     Indication: Giant cell arteritis
  6. ACTEMRA [Suspect]
     Active Substance: TOCILIZUMAB
  7. METFORMIN [Concomitant]
     Active Substance: METFORMIN HYDROCHLORIDE
     Indication: Diabetes mellitus
  8. PREDNISONE [Concomitant]
     Active Substance: PREDNISONE
  9. LEVEMIR [Concomitant]
     Active Substance: INSULIN DETEMIR
     Indication: Diabetes mellitus
  10. NOVOLOG [Concomitant]
     Active Substance: INSULIN ASPART
     Indication: Diabetes mellitus
  11. TYLENOL [Concomitant]
     Active Substance: ACETAMINOPHEN
     Indication: Pain
  12. GABAPENTIN [Concomitant]
     Active Substance: GABAPENTIN
     Indication: Occipital neuralgia
  13. CARBAMAZEPINE [Concomitant]
     Active Substance: CARBAMAZEPINE
     Indication: Occipital neuralgia

REACTIONS (9)
  - Retinal vein occlusion [Unknown]
  - Knee arthroplasty [Unknown]
  - Immunodeficiency [Unknown]
  - Bone disorder [Unknown]
  - Gait inability [Unknown]
  - Ill-defined disorder [Unknown]
  - Occipital neuralgia [Unknown]
  - Pain [Not Recovered/Not Resolved]
  - Swelling [Not Recovered/Not Resolved]
